FAERS Safety Report 4328644-6 (Version None)
Quarter: 2004Q2

REPORT INFORMATION
  Report Type: 
  Country: None (occurrence: None)
  Receive Date: 20040401
  Receipt Date: 20031205
  Transmission Date: 20050107
  Serious: Yes (Death, Hospitalization)
  Sender: FDA-Public Use
  Company Number: PHHO2003AR15706

PATIENT
  Age: 68 Year
  Sex: Female
  Weight: 53 kg

DRUGS (3)
  1. NEORAL [Suspect]
     Indication: LIVER TRANSPLANT
     Dosage: 100 MG / DAY
     Route: 048
     Dates: start: 20030419, end: 20030904
  2. PREDNISONE [Concomitant]
     Indication: LIVER TRANSPLANT
     Dosage: 10 MG / DAY
     Route: 048
     Dates: start: 20030419
  3. AZATHIOPRINE [Concomitant]
     Indication: LIVER TRANSPLANT
     Dosage: 50 MG / DAY
     Route: 048
     Dates: start: 20030418, end: 20030604

REACTIONS (10)
  - ASCITES [None]
  - EPSTEIN-BARR VIRUS ANTIGEN POSITIVE [None]
  - LEUKOPENIA [None]
  - LIVER FUNCTION TEST ABNORMAL [None]
  - LIVER TRANSPLANT REJECTION [None]
  - LYMPHOPROLIFERATIVE DISORDER [None]
  - MALAISE [None]
  - PYREXIA [None]
  - RENAL FAILURE [None]
  - SEPSIS [None]
